FAERS Safety Report 7622042-5 (Version None)
Quarter: 2011Q3

REPORT INFORMATION
  Report Type: 
  Country: None (occurrence: None)
  Receive Date: 20110720
  Receipt Date: 20110119
  Transmission Date: 20111222
  Serious: Yes (Life-Threatening, Other)
  Sender: FDA-Public Use
  Company Number: US-BAYER-2010-001009

PATIENT
  Age: 38 Year
  Sex: Female

DRUGS (2)
  1. AVELOX [Suspect]
     Dosage: UNK
     Dates: start: 20101101, end: 20101101
  2. AVELOX [Suspect]
     Indication: SINUSITIS
     Dosage: 400 MG, UNK
     Route: 048
     Dates: start: 20101201

REACTIONS (6)
  - SWELLING FACE [None]
  - LIP SWELLING [None]
  - URTICARIA [None]
  - VOMITING [None]
  - HYPERSENSITIVITY [None]
  - EYE SWELLING [None]
